FAERS Safety Report 6477696-6 (Version None)
Quarter: 2009Q4

REPORT INFORMATION
  Report Type: 
  Country: None (occurrence: None)
  Receive Date: 20091207
  Receipt Date: 20091125
  Transmission Date: 20100525
  Serious: Yes (Other)
  Sender: FDA-Public Use
  Company Number: CH-PFIZER INC-2009302946

PATIENT
  Age: 66 Year
  Sex: Male

DRUGS (1)
  1. SORTIS [Suspect]

REACTIONS (1)
  - POLYNEUROPATHY [None]
